FAERS Safety Report 7387250-X (Version None)
Quarter: 2011Q1

REPORT INFORMATION
  Report Type: 
  Country: None (occurrence: None)
  Receive Date: 20110331
  Receipt Date: 20110329
  Transmission Date: 20110831
  Serious: Yes (Other)
  Sender: FDA-Public Use
  Company Number: NL-PFIZER INC-2011070468

PATIENT
  Sex: Female

DRUGS (4)
  1. LYRICA [Suspect]
     Dosage: 150 MG, DAILY
  2. LYRICA [Suspect]
     Dosage: 75 MG, DAILY
  3. LYRICA [Suspect]
     Dosage: 75 MG, ALTERNATE DAY
  4. LYRICA [Suspect]
     Dosage: 300 MG, DAILY

REACTIONS (3)
  - SYNCOPE [None]
  - WITHDRAWAL SYNDROME [None]
  - DISORIENTATION [None]
